FAERS Safety Report 18922803 (Version 6)
Quarter: 2021Q2

REPORT INFORMATION
  Report Type: Spontaneous
  Country: US (occurrence: US)
  Receive Date: 20210222
  Receipt Date: 20210401
  Transmission Date: 20210717
  Serious: No
  Sender: FDA-Public Use
  Company Number: US-JNJFOC-20210221900

PATIENT
  Age: 33 Year
  Sex: Male

DRUGS (1)
  1. TREMFYA [Suspect]
     Active Substance: GUSELKUMAB
     Indication: ARTHRITIS
     Dosage: MAINTENANCE DOSE OF WEEK 0 AND WEEK 4
     Route: 058

REACTIONS (4)
  - Device issue [Unknown]
  - Product dose omission issue [Unknown]
  - Product use in unapproved indication [Unknown]
  - Off label use [Unknown]
